FAERS Safety Report 19027355 (Version 1)
Quarter: 2021Q1

REPORT INFORMATION
  Report Type: Spontaneous
  Country: CA (occurrence: CA)
  Receive Date: 20210318
  Receipt Date: 20210318
  Transmission Date: 20210420
  Serious: Yes (Life-Threatening, Hospitalization)
  Sender: FDA-Public Use
  Company Number: CA-PFIZER INC-2021282169

PATIENT
  Age: 20 Year
  Sex: Male
  Weight: 92 kg

DRUGS (3)
  1. VINCRISTINE SULFATE. [Suspect]
     Active Substance: VINCRISTINE SULFATE
     Dosage: UNK
  2. ONCASPAR [Suspect]
     Active Substance: PEGASPARGASE
     Dosage: 3750 UNITS / 5 ML
  3. CYTARABINE. [Suspect]
     Active Substance: CYTARABINE
     Dosage: UNK

REACTIONS (1)
  - Febrile neutropenia [Recovering/Resolving]
